FAERS Safety Report 5968342-6 (Version None)
Quarter: 2008Q4

REPORT INFORMATION
  Report Type: 
  Country: None (occurrence: None)
  Receive Date: 20081126
  Receipt Date: 20081120
  Transmission Date: 20090506
  Serious: Yes (Hospitalization)
  Sender: FDA-Public Use
  Company Number: FI-JNJFOC-20080705035

PATIENT
  Sex: Female
  Weight: 59 kg

DRUGS (5)
  1. PALIPERIDONE [Suspect]
     Route: 048
  2. PALIPERIDONE [Suspect]
     Indication: SCHIZOPHRENIA
     Route: 048
  3. ZOLOFT [Concomitant]
     Indication: SCHIZOPHRENIA
     Route: 048
  4. COLONSOFT [Concomitant]
     Indication: CONSTIPATION
     Route: 048
  5. HUMEKTAN [Concomitant]
     Indication: ACNE

REACTIONS (3)
  - AGITATION [None]
  - INSOMNIA [None]
  - PSYCHOTIC DISORDER [None]
